FAERS Safety Report 22165926 (Version 2)
Quarter: 2023Q2

REPORT INFORMATION
  Report Type: Spontaneous
  Country: US (occurrence: US)
  Receive Date: 20230403
  Receipt Date: 20230504
  Transmission Date: 20230722
  Serious: Yes (Other)
  Sender: FDA-Public Use
  Company Number: US-BEH-2023157022

PATIENT
  Age: 8 Year
  Sex: Male

DRUGS (2)
  1. HIZENTRA [Suspect]
     Active Substance: HUMAN IMMUNOGLOBULIN G
     Indication: Immunodeficiency
     Dosage: UNK
     Route: 042
     Dates: start: 2019
  2. HIZENTRA [Suspect]
     Active Substance: HUMAN IMMUNOGLOBULIN G
     Dosage: UNK
     Route: 058
     Dates: start: 2019

REACTIONS (11)
  - Haematemesis [Unknown]
  - Injection site infection [Unknown]
  - Wound [Unknown]
  - Tissue discolouration [Unknown]
  - Injection site infection [Unknown]
  - Wound [Unknown]
  - Tissue discolouration [Unknown]
  - No adverse event [Unknown]
  - Off label use [Unknown]
  - Incorrect product administration duration [Unknown]
  - Wrong technique in product usage process [Unknown]

NARRATIVE: CASE EVENT DATE: 20230101
